FAERS Safety Report 9834690 (Version 5)
Quarter: 2014Q1

REPORT INFORMATION
  Report Type: Report from Study
  Country: FR (occurrence: FR)
  Receive Date: 20140122
  Receipt Date: 20140303
  Transmission Date: 20141002
  Serious: Yes (Hospitalization, Other)
  Sender: FDA-Public Use
  Company Number: FR-ROCHE-1306553

PATIENT
  Age: 93 Year
  Sex: Male
  Weight: 72 kg

DRUGS (29)
  1. VISMODEGIB [Suspect]
     Indication: BASAL CELL CARCINOMA
     Dosage: LAST DOSE PRIOR TO THE SAE:17/OCT/2013
     Route: 048
     Dates: start: 20120911, end: 20131017
  2. DOLIPRANE [Concomitant]
     Indication: OSTEOARTHRITIS
     Route: 065
     Dates: start: 19900101
  3. PRAVASTATINE [Concomitant]
     Indication: HYPERCHOLESTEROLAEMIA
     Route: 065
     Dates: start: 20120501
  4. AMLODIPINE [Concomitant]
     Indication: HYPERTENSION
     Route: 065
     Dates: start: 20120501
  5. FUROSEMIDE/SPIRONOLACTONE [Concomitant]
     Route: 065
     Dates: start: 20120501
  6. PREVISCAN (FRANCE) [Concomitant]
     Indication: ARRHYTHMIA
     Route: 065
     Dates: start: 20110801, end: 20131029
  7. KARDEGIC [Concomitant]
     Indication: MYOCARDIAL ISCHAEMIA
     Route: 065
     Dates: start: 20120201
  8. TRINITRINE [Concomitant]
     Indication: MYOCARDIAL ISCHAEMIA
     Route: 065
     Dates: start: 20120201
  9. VITABACT [Concomitant]
     Indication: PRURITUS
     Route: 065
     Dates: start: 20120801
  10. VITABACT [Concomitant]
     Route: 065
     Dates: start: 20121123
  11. ACETYLCYSTEINE [Concomitant]
     Indication: RESPIRATORY TRACT CONGESTION
     Route: 065
     Dates: start: 20120801
  12. COLTRAMYL [Concomitant]
     Indication: MUSCLE SPASMS
     Route: 065
     Dates: start: 20121008, end: 20121106
  13. COLTRAMYL [Concomitant]
     Dosage: DOSE: 4 TABLETS
     Route: 065
     Dates: start: 20130130
  14. NERISONE OILY CREAM [Concomitant]
     Indication: RASH
     Route: 065
     Dates: start: 20121008, end: 20121105
  15. NERISONE OILY CREAM [Concomitant]
     Route: 065
     Dates: start: 20121106, end: 20121203
  16. EFUDIX [Concomitant]
     Indication: SQUAMOUS CELL CARCINOMA
     Route: 065
     Dates: start: 20121106, end: 20121203
  17. THIOCOLCHICOSIDE [Concomitant]
     Indication: MUSCLE SPASMS
     Route: 065
  18. DIFLUCORTOLONE [Concomitant]
     Indication: RASH
     Dosage: DOSE: 1 APPLICATION
     Route: 065
     Dates: start: 20121005, end: 20130102
  19. FLUOROURACILE [Concomitant]
     Indication: SQUAMOUS CELL CARCINOMA
     Dosage: DOSE: 1 APPLICATION
     Route: 065
     Dates: start: 20121106, end: 20130102
  20. TOBREX [Concomitant]
     Indication: CONJUNCTIVITIS
     Route: 065
     Dates: start: 20130130, end: 20130207
  21. GLIBENCLAMIDE [Concomitant]
     Indication: TYPE 2 DIABETES MELLITUS
     Route: 065
     Dates: start: 20121201
  22. COUMADINE [Concomitant]
     Indication: ARRHYTHMIA
     Route: 065
     Dates: start: 20131107
  23. CALCIPARINE [Concomitant]
     Indication: ARRHYTHMIA
     Dosage: DOSE: 17500U/12HR
     Route: 065
     Dates: start: 20131030, end: 20131106
  24. ORBENINE [Concomitant]
     Indication: ARTHRITIS BACTERIAL
     Route: 065
     Dates: start: 20131205, end: 20131223
  25. OFLOCET (FRANCE) [Concomitant]
     Indication: ARTHRITIS BACTERIAL
     Route: 065
     Dates: start: 20131205
  26. DALACINE [Concomitant]
     Indication: ARTHRITIS BACTERIAL
     Route: 065
     Dates: start: 20131224
  27. LASILIX [Concomitant]
     Indication: CARDIAC FAILURE
     Route: 065
     Dates: start: 20131227, end: 20131229
  28. LASILIX [Concomitant]
     Route: 065
     Dates: start: 20131230, end: 20140101
  29. LASILIX [Concomitant]
     Route: 065
     Dates: start: 20140102

REACTIONS (3)
  - Squamous cell carcinoma [Not Recovered/Not Resolved]
  - Physical disability [Recovered/Resolved with Sequelae]
  - Monarthritis [Recovered/Resolved]
